FAERS Safety Report 4477489-5 (Version None)
Quarter: 2004Q4

REPORT INFORMATION
  Report Type: 
  Country: None (occurrence: None)
  Receive Date: 20041018
  Receipt Date: 20041007
  Transmission Date: 20050328
  Serious: Yes (Congenital Anomaly, Other)
  Sender: FDA-Public Use
  Company Number: US-GLAXOSMITHKLINE-A0529124A

PATIENT
  Sex: Female

DRUGS (2)
  1. PAXIL [Suspect]
     Indication: ILL-DEFINED DISORDER
  2. KLONOPIN [Concomitant]

REACTIONS (2)
  - CONGENITAL EYE DISORDER [None]
  - DRUG EXPOSURE DURING PREGNANCY [None]
